FAERS Safety Report 9508473 (Version 1)
Quarter: 2013Q1

REPORT INFORMATION
  Report Type: Spontaneous
  Country: US (occurrence: None)
  Receive Date: 20130305
  Receipt Date: 20130305
  Transmission Date: 20140127
  Serious: Yes (Other)
  Sender: FDA-Public Use
  Company Number: 163-21880-12112035

PATIENT
  Age: 45 Year
  Sex: Female

DRUGS (4)
  1. REVLIMID (LENALIDOMIDE) (25 MILLIGRAM, CAPSULES) [Suspect]
     Indication: PLASMA CELL MYELOMA
     Dosage: CAPSULE, 25 MG, 28 IN 35 D, PO
     Dates: start: 201104
  2. ADVIL (IBUPROFEN) [Concomitant]
  3. VITAMIN B12 (CYANOCOBALAMIN) [Concomitant]
  4. VELCADE (BORTEZOMIB) [Concomitant]

REACTIONS (2)
  - White blood cell count decreased [None]
  - Drug dose omission [None]
